FAERS Safety Report 11068224 (Version 1)
Quarter: 2015Q2

REPORT INFORMATION
  Report Type: Spontaneous
  Country: US (occurrence: US)
  Receive Date: 20150427
  Receipt Date: 20150427
  Transmission Date: 20150821
  Serious: Yes (Life-Threatening, Other)
  Sender: FDA-Public Use
  Company Number: US-ELI_LILLY_AND_COMPANY-US201504006971

PATIENT
  Sex: Male

DRUGS (1)
  1. HUMULIN N [Suspect]
     Active Substance: INSULIN HUMAN
     Indication: DIABETES MELLITUS
     Dosage: 40 U, UNKNOWN
     Route: 065

REACTIONS (4)
  - Blood glucose decreased [Unknown]
  - Shock hypoglycaemic [Unknown]
  - Confusional state [Unknown]
  - Glycosylated haemoglobin increased [Unknown]
